FAERS Safety Report 10103813 (Version 3)
Quarter: 2014Q2

REPORT INFORMATION
  Report Type: Report from Study
  Country: NL (occurrence: NL)
  Receive Date: 20140424
  Receipt Date: 20140524
  Transmission Date: 20141212
  Serious: Yes (Death, Hospitalization)
  Sender: FDA-Public Use
  Company Number: NL-ABBVIE-14P-114-1228744-00

PATIENT
  Sex: Male
  Weight: 90 kg

DRUGS (4)
  1. LUCRIN DEPOT [Suspect]
     Indication: PROSTATE CANCER
     Route: 058
     Dates: start: 20131018, end: 20140315
  2. DOCETAXEL [Suspect]
     Indication: PRODUCT USED FOR UNKNOWN INDICATION
  3. CIPROXIN [Concomitant]
     Indication: PRODUCT USED FOR UNKNOWN INDICATION
  4. CEFUROXIM [Concomitant]
     Indication: PRODUCT USED FOR UNKNOWN INDICATION

REACTIONS (4)
  - Pulmonary sepsis [Fatal]
  - Polyneuropathy [Fatal]
  - Depressed level of consciousness [Fatal]
  - Renal failure [Fatal]
